FAERS Safety Report 9051044 (Version 1)
Quarter: 2013Q1

REPORT INFORMATION
  Report Type: Spontaneous
  Country: BR (occurrence: BR)
  Receive Date: 20130205
  Receipt Date: 20130205
  Transmission Date: 20140127
  Serious: Yes (Other)
  Sender: FDA-Public Use
  Company Number: PHHY2012BR072931

PATIENT
  Sex: Female

DRUGS (13)
  1. ONBREZ [Suspect]
     Indication: PULMONARY HYPERTENSION
     Dosage: 150 UG, ONCE DAILY
     Dates: start: 201207
  2. FORASEQ [Suspect]
     Dosage: UNK
  3. ACETYLCYSTEINE [Suspect]
  4. NEBILET [Suspect]
  5. ALENIA [Suspect]
  6. PURAN T4 [Suspect]
  7. NATRILIX [Suspect]
  8. CONDROFLEX [Suspect]
  9. MAXDRATE [Suspect]
  10. RISEDROSS [Suspect]
  11. ASSERT [Suspect]
  12. INELLARE [Suspect]
  13. MOMETASONE FUROATE [Concomitant]

REACTIONS (11)
  - Cardiac failure [Unknown]
  - Pulmonary hypertension [Unknown]
  - Dengue fever [Unknown]
  - Fall [Unknown]
  - Infection [Recovering/Resolving]
  - Tremor [Unknown]
  - Abasia [Recovering/Resolving]
  - Malaise [Recovering/Resolving]
  - Off label use [Unknown]
  - Chronic obstructive pulmonary disease [Unknown]
  - Hypertension [Unknown]
